FAERS Safety Report 26079744 (Version 1)
Quarter: 2025Q4

REPORT INFORMATION
  Report Type: Report from Study
  Country: US (occurrence: US)
  Receive Date: 20251123
  Receipt Date: 20251123
  Transmission Date: 20260118
  Serious: Yes (Death)
  Sender: ABBVIE
  Company Number: US-ABBVIE-6560718

PATIENT
  Age: 61 Year
  Sex: Female

DRUGS (1)
  1. SYNTHROID [Suspect]
     Active Substance: LEVOTHYROXINE SODIUM
     Indication: Product used for unknown indication
     Dosage: 88MCG/ TAKE ONE TABLET DAILY
     Route: 048
     Dates: start: 20250619, end: 20250925

REACTIONS (1)
  - Death [Fatal]

NARRATIVE: CASE EVENT DATE: 20250925
